FAERS Safety Report 4623014-5 (Version None)
Quarter: 2005Q1

REPORT INFORMATION
  Report Type: 
  Country: None (occurrence: None)
  Receive Date: 20050329
  Receipt Date: 20050311
  Transmission Date: 20050727
  Serious: Yes (Hospitalization, Other)
  Sender: FDA-Public Use
  Company Number: WAES 0503USA03066

PATIENT
  Age: 61 Year
  Sex: Male

DRUGS (1)
  1. PEPCID [Suspect]
     Dosage: PO
     Route: 048

REACTIONS (8)
  - DRUG INEFFECTIVE [None]
  - DUODENAL STENOSIS [None]
  - DUODENAL ULCER [None]
  - DUODENAL ULCER HAEMORRHAGE [None]
  - HELICOBACTER PYLORI IDENTIFICATION TEST POSITIVE [None]
  - IDIOPATHIC THROMBOCYTOPENIC PURPURA [None]
  - IMPAIRED GASTRIC EMPTYING [None]
  - REFLUX OESOPHAGITIS [None]
